FAERS Safety Report 9054432 (Version 1)
Quarter: 2013Q1

REPORT INFORMATION
  Report Type: Spontaneous
  Country: US (occurrence: US)
  Receive Date: 20130208
  Receipt Date: 20130208
  Transmission Date: 20140127
  Serious: No
  Sender: FDA-Public Use
  Company Number: US-GLAXOSMITHKLINE-A0967518A

PATIENT
  Age: 64 Year
  Sex: Female
  Weight: 54 kg

DRUGS (2)
  1. PAXIL [Suspect]
     Indication: PRODUCT USED FOR UNKNOWN INDICATION
     Dosage: 10MG SEE DOSAGE TEXT
     Route: 048
     Dates: start: 201109, end: 20120206
  2. CETIRIZINE HCL, PSEUDOEPHEDRINE HCL [Suspect]
     Indication: HYPERSENSITIVITY
     Dosage: 1TAB SEE DOSAGE TEXT
     Route: 048
     Dates: start: 201112

REACTIONS (1)
  - Blister [Unknown]
